FAERS Safety Report 7647562-9 (Version None)
Quarter: 2011Q3

REPORT INFORMATION
  Report Type: 
  Country: None (occurrence: None)
  Receive Date: 20110801
  Receipt Date: 20110720
  Transmission Date: 20111222
  Serious: Yes (Hospitalization, Other)
  Sender: FDA-Public Use
  Company Number: US-ASTRAZENECA-2008UW08630

PATIENT
  Age: 51 Year
  Sex: Male
  Weight: 140.6 kg

DRUGS (16)
  1. SEROQUEL [Suspect]
     Indication: DEPRESSION
     Route: 048
     Dates: start: 19960101, end: 20000901
  2. ZOLOFT [Concomitant]
     Dates: start: 19990404, end: 20060821
  3. PRILOSEC [Concomitant]
     Dates: start: 20000823
  4. KETOROLAC TROMETHAMINE [Concomitant]
     Dates: start: 20000914
  5. XENICAL [Concomitant]
     Dates: start: 20000823
  6. AVANDIA [Concomitant]
     Dates: start: 20000918
  7. MEPROZINE [Concomitant]
     Dates: start: 20000218
  8. OXYCODONE AND ACETAMINOPHEN [Concomitant]
     Dosage: 5/325
     Dates: start: 20000328
  9. PRILOSEC [Concomitant]
     Dates: start: 20000410
  10. SINGULAIR [Concomitant]
     Dates: start: 20000426
  11. WELLBUTRIN [Concomitant]
     Dates: start: 20010426, end: 20051015
  12. SEROQUEL [Suspect]
     Route: 048
     Dates: start: 20000407
  13. REMERON [Concomitant]
     Dates: start: 20000410
  14. AVANDIA [Concomitant]
     Dates: start: 20000914
  15. HYDROCODONE BITARTRATE AND ACETAMINOPHEN [Concomitant]
     Dosage: 5/500
     Dates: start: 20000407
  16. XENICAL [Concomitant]
     Dates: start: 20000617

REACTIONS (9)
  - ABDOMINAL HERNIA [None]
  - TOOTH DISORDER [None]
  - INFECTION [None]
  - CHEST PAIN [None]
  - DIABETIC COMA [None]
  - ANORECTAL DISORDER [None]
  - INTERVERTEBRAL DISC PROTRUSION [None]
  - DIABETES MELLITUS [None]
  - LOWER LIMB FRACTURE [None]
